FAERS Safety Report 10355759 (Version 1)
Quarter: 2014Q3

REPORT INFORMATION
  Report Type: Spontaneous
  Country: US (occurrence: US)
  Receive Date: 20140731
  Receipt Date: 20140731
  Transmission Date: 20150326
  Serious: No
  Sender: FDA-Public Use
  Company Number: US-GILEAD-2014-0110516

PATIENT
  Age: 55 Year
  Sex: Male

DRUGS (2)
  1. SOVALDI [Suspect]
     Active Substance: SOFOSBUVIR
     Indication: HEPATITIS C
     Dosage: 400 MG, QD
     Route: 048
     Dates: start: 20140708
  2. RIBASPHERE RIBAPAK [Concomitant]
     Active Substance: RIBAVIRIN

REACTIONS (5)
  - Abnormal dreams [Unknown]
  - Nocturia [Unknown]
  - Insomnia [Unknown]
  - Lethargy [Unknown]
  - Abdominal discomfort [Unknown]

NARRATIVE: CASE EVENT DATE: 20140708
